FAERS Safety Report 7435399-5 (Version None)
Quarter: 2011Q2

REPORT INFORMATION
  Report Type: 
  Country: None (occurrence: None)
  Receive Date: 20110425
  Receipt Date: 20110420
  Transmission Date: 20111010
  Serious: Yes (Other)
  Sender: FDA-Public Use
  Company Number: US-AMGEN-USASP2011020133

PATIENT
  Age: 56 Year
  Sex: Female

DRUGS (3)
  1. NPLATE [Suspect]
     Indication: IDIOPATHIC THROMBOCYTOPENIC PURPURA
     Dosage: 10 A?G/KG, UNK
     Dates: start: 20090824, end: 20100106
  2. NPLATE [Suspect]
     Dates: start: 20090827, end: 20100106
  3. INTERFERON ALPHA 1-A [Concomitant]
     Dosage: UNK
     Dates: start: 20100101

REACTIONS (4)
  - ANAEMIA MACROCYTIC [None]
  - HAEMATOLOGICAL MALIGNANCY [None]
  - MARROW HYPERPLASIA [None]
  - BONE MARROW RETICULIN FIBROSIS [None]
